FAERS Safety Report 12589978 (Version 5)
Quarter: 2017Q1

REPORT INFORMATION
  Report Type: Spontaneous
  Country: VE (occurrence: VE)
  Receive Date: 20160725
  Receipt Date: 20170217
  Transmission Date: 20170428
  Serious: Yes (Death, Hospitalization, Other)
  Sender: FDA-Public Use
  Company Number: VE-JNJFOC-20160718094

PATIENT
  Age: 68 Year
  Sex: Female
  Weight: 54 kg

DRUGS (3)
  1. SYNTHROID [Concomitant]
     Active Substance: LEVOTHYROXINE SODIUM
     Route: 065
     Dates: start: 2000
  2. XARELTO [Suspect]
     Active Substance: RIVAROXABAN
     Indication: ATRIAL FIBRILLATION
     Route: 048
     Dates: start: 20160518, end: 20160714
  3. XARELTO [Suspect]
     Active Substance: RIVAROXABAN
     Indication: CEREBROVASCULAR ACCIDENT PROPHYLAXIS
     Route: 048
     Dates: start: 20160518, end: 20160714

REACTIONS (2)
  - Haemorrhagic transformation stroke [Fatal]
  - Ischaemic stroke [Unknown]

NARRATIVE: CASE EVENT DATE: 20160710
